FAERS Safety Report 19371397 (Version 2)
Quarter: 2021Q3

REPORT INFORMATION
  Report Type: Spontaneous
  Country: US (occurrence: US)
  Receive Date: 20210603
  Receipt Date: 20210811
  Transmission Date: 20211014
  Serious: No
  Sender: FDA-Public Use
  Company Number: US-SA-2021SA181414

PATIENT
  Sex: Male
  Weight: 111.13 kg

DRUGS (1)
  1. THYROGEN [Suspect]
     Active Substance: THYROTROPIN ALFA
     Indication: PLASMA CELL MYELOMA
     Dosage: 0.9 MG (VIALS), QD (24 HOURS FOR 2 DOSES)
     Route: 030
     Dates: start: 2021, end: 2021

REACTIONS (4)
  - Bronchitis [Unknown]
  - Abscess [Unknown]
  - Product use in unapproved indication [Unknown]
  - Nasal congestion [Unknown]

NARRATIVE: CASE EVENT DATE: 2021
